FAERS Safety Report 9395903 (Version 3)
Quarter: 2013Q3

REPORT INFORMATION
  Report Type: Report from Study
  Country: US (occurrence: US)
  Receive Date: 20130711
  Receipt Date: 20130816
  Transmission Date: 20140515
  Serious: Yes (Hospitalization)
  Sender: FDA-Public Use
  Company Number: US-ABBOTT-13P-163-1114555-00

PATIENT
  Age: 56 Year
  Sex: Female

DRUGS (9)
  1. HUMIRA [Suspect]
     Indication: CROHN^S DISEASE
     Route: 058
     Dates: start: 201303, end: 201303
  2. HUMIRA [Suspect]
     Dosage: TWO WEEKS AFTER 160 MG DOSE
     Route: 058
     Dates: start: 2013, end: 2013
  3. HUMIRA [Suspect]
     Dosage: FOUR WEEKS AFTER 160MG DOSE
     Route: 058
     Dates: start: 2013, end: 201306
  4. HUMIRA [Suspect]
     Route: 058
     Dates: start: 20130702
  5. LISINOPRIL [Concomitant]
     Indication: HYPERTENSION
  6. CALTRATE + D [Concomitant]
     Indication: PRODUCT USED FOR UNKNOWN INDICATION
  7. UNNAMED EYE DROPS [Concomitant]
     Indication: GLAUCOMA
  8. IRON [Concomitant]
     Indication: ANAEMIA
  9. IMODIUM [Concomitant]
     Indication: DIARRHOEA

REACTIONS (7)
  - Small intestinal obstruction [Unknown]
  - General physical health deterioration [Unknown]
  - Pneumonia [Unknown]
  - Weight decreased [Unknown]
  - Diarrhoea [Unknown]
  - Vomiting [Unknown]
  - Drug ineffective [Not Recovered/Not Resolved]
